FAERS Safety Report 4274081-2 (Version None)
Quarter: 2004Q1

REPORT INFORMATION
  Report Type: 
  Country: None (occurrence: None)
  Receive Date: 20040120
  Receipt Date: 20030212
  Transmission Date: 20041129
  Serious: Yes (Other)
  Sender: FDA-Public Use
  Company Number: US-GLAXOSMITHKLINE-A0396611A

PATIENT
  Age: 20 Year
  Sex: Female

DRUGS (4)
  1. ESKALITH CR [Suspect]
     Indication: BIPOLAR DISORDER
     Dosage: 450MG THREE TIMES PER DAY
     Route: 048
     Dates: start: 20001011, end: 20030210
  2. DEPAKOTE ER [Concomitant]
     Indication: BIPOLAR DISORDER
     Dosage: 500MG TWICE PER DAY
     Route: 065
     Dates: start: 20010918, end: 20030210
  3. WELLBUTRIN SR [Concomitant]
     Indication: BIPOLAR DISORDER
     Dosage: 150MG TWICE PER DAY
     Route: 065
     Dates: start: 20010131, end: 20030715
  4. ZYPREXA [Concomitant]
     Indication: BIPOLAR DISORDER
     Dosage: 12.5MG PER DAY
     Route: 065
     Dates: start: 20030210

REACTIONS (7)
  - ATRIAL TACHYCARDIA [None]
  - BIPOLAR DISORDER [None]
  - DRUG EXPOSURE DURING PREGNANCY [None]
  - MITRAL VALVE PROLAPSE [None]
  - PRE-ECLAMPSIA [None]
  - PROTEINURIA [None]
  - SYNCOPE [None]
